FAERS Safety Report 9550828 (Version 2)
Quarter: 2019Q1

REPORT INFORMATION
  Report Type: Report from Study
  Country: US (occurrence: US)
  Receive Date: 20130924
  Receipt Date: 20190204
  Transmission Date: 20190418
  Serious: Yes (Disabling, Other)
  Sender: FDA-Public Use
  Company Number: US-SANOFI-AVENTIS-2013SA053654

PATIENT
  Age: 49 Year
  Sex: Female

DRUGS (3)
  1. TERIFLUNOMIDE. [Suspect]
     Active Substance: TERIFLUNOMIDE
     Indication: MULTIPLE SCLEROSIS
     Dosage: 14 MG,QD
     Route: 048
     Dates: start: 20130503, end: 20141128
  2. TERIFLUNOMIDE. [Suspect]
     Active Substance: TERIFLUNOMIDE
     Dosage: 14 MG, QD
     Route: 048
     Dates: start: 2018
  3. TERIFLUNOMIDE. [Suspect]
     Active Substance: TERIFLUNOMIDE
     Dosage: 14 MG,QD
     Route: 048
     Dates: start: 20150101

REACTIONS (23)
  - Finger deformity [Not Recovered/Not Resolved]
  - Nasopharyngitis [Not Recovered/Not Resolved]
  - Nasal congestion [Not Recovered/Not Resolved]
  - Bedridden [Not Recovered/Not Resolved]
  - Productive cough [Recovering/Resolving]
  - Blister [Not Recovered/Not Resolved]
  - Visual impairment [Not Recovered/Not Resolved]
  - Walking disability [Not Recovered/Not Resolved]
  - Alopecia [Recovered/Resolved]
  - Oropharyngeal pain [Recovering/Resolving]
  - Multiple sclerosis [Not Recovered/Not Resolved]
  - Insomnia [Not Recovered/Not Resolved]
  - Herpes zoster [Not Recovered/Not Resolved]
  - Alopecia [Unknown]
  - Wheelchair user [Unknown]
  - Muscle spasms [Not Recovered/Not Resolved]
  - Diarrhoea [Unknown]
  - Hypoacusis [Not Recovered/Not Resolved]
  - Limb deformity [Not Recovered/Not Resolved]
  - Rash [Not Recovered/Not Resolved]
  - Headache [Unknown]
  - Rhinorrhoea [Not Recovered/Not Resolved]
  - Abnormal loss of weight [Not Recovered/Not Resolved]

NARRATIVE: CASE EVENT DATE: 2013
